FAERS Safety Report 8884718 (Version 2)
Quarter: 2013Q1

REPORT INFORMATION
  Report Type: Spontaneous
  Country: US (occurrence: US)
  Receive Date: 20121105
  Receipt Date: 20130107
  Transmission Date: 20140127
  Serious: No
  Sender: FDA-Public Use
  Company Number: US-009507513-1210USA010676

PATIENT
  Age: 28 Year
  Sex: Female
  Weight: 81.63 kg

DRUGS (1)
  1. IMPLANON [Suspect]
     Indication: CONTRACEPTION
     Dosage: 1 TIME INSERTION, 3 YEARS
     Route: 059
     Dates: start: 20120717

REACTIONS (3)
  - Abdominal pain [Unknown]
  - Headache [Unknown]
  - Metrorrhagia [Unknown]
